FAERS Safety Report 6278377-4 (Version None)
Quarter: 2009Q3

REPORT INFORMATION
  Report Type: 
  Country: None (occurrence: None)
  Receive Date: 20090720
  Receipt Date: 20090720
  Transmission Date: 20100115
  Serious: Yes (Other)
  Sender: FDA-Public Use
  Company Number: None

PATIENT
  Sex: Male
  Weight: 62.5964 kg

DRUGS (1)
  1. CLARITHROMYCIN [Suspect]
     Indication: INFECTION
     Dosage: 1 TABLET TWICE A DAY PO
     Route: 048
     Dates: start: 20090702, end: 20090705

REACTIONS (5)
  - ABDOMINAL PAIN [None]
  - FAECES DISCOLOURED [None]
  - FEELING ABNORMAL [None]
  - INSOMNIA [None]
  - RESTLESSNESS [None]
